FAERS Safety Report 5232235-2 (Version None)
Quarter: 2007Q1

REPORT INFORMATION
  Report Type: 
  Country: None (occurrence: None)
  Receive Date: 20061204
  Receipt Date: 20060803
  Transmission Date: 20070707
  Serious: No
  Sender: FDA-Public Use
  Company Number: 2006-BP-08368BP

PATIENT
  Age: 62 Year
  Sex: Male
  Weight: 86.18 kg

DRUGS (6)
  1. SPIRIVA [Suspect]
     Indication: CHRONIC OBSTRUCTIVE PULMONARY DISEASE
     Dosage: 18 MCG (18 MCG,QD),IH
     Dates: start: 20050401
  2. ADVAIR (SERETIDE /01420901/) [Concomitant]
  3. ACTOS [Concomitant]
  4. HYZAAR [Concomitant]
  5. SPIRONOLACTONE [Concomitant]
  6. FUROSEMIDE [Concomitant]

REACTIONS (1)
  - DYSGEUSIA [None]
